FAERS Safety Report 7332589-7 (Version None)
Quarter: 2011Q1

REPORT INFORMATION
  Report Type: 
  Country: None (occurrence: None)
  Receive Date: 20110304
  Receipt Date: 20110301
  Transmission Date: 20110831
  Serious: Yes (Death, Other)
  Sender: FDA-Public Use
  Company Number: PHHY2010NL85346

PATIENT
  Sex: Male

DRUGS (4)
  1. ZOMETA [Suspect]
     Dosage: 4 MG/5 ML, CONCENTRATE FOR SOLUTION FOR IV INFUSION, ADMINISTERED WITH NACL 0.9% 100ML
     Dates: start: 20101202
  2. ZOMETA [Suspect]
     Dosage: 4 MG/5 ML, CONCENTRATE FOR SOLUTION FOR IV INFUSION, ADMINISTERED WITH NACL 0.9% 100ML
     Dates: start: 20110223
  3. ZOMETA [Suspect]
     Indication: PROSTATE CANCER METASTATIC
     Dosage: 4 MG/5 ML, CONCENTRATE FOR SOLUTION FOR IV INFUSION, ADMINISTERED WITH NACL 0.9% 100ML
     Dates: start: 20100707
  4. ZOMETA [Suspect]
     Dosage: 4 MG/5 ML, CONCENTRATE FOR SOLUTION FOR IV INFUSION, ADMINISTERED WITH NACL 0.9% 100ML
     Dates: start: 20101102

REACTIONS (5)
  - PAIN IN JAW [None]
  - JAW DISORDER [None]
  - DEATH [None]
  - ASTHENIA [None]
  - PAIN [None]
